FAERS Safety Report 20515587 (Version 3)
Quarter: 2022Q1

REPORT INFORMATION
  Report Type: Spontaneous
  Country: IT (occurrence: IT)
  Receive Date: 20220224
  Receipt Date: 20220321
  Transmission Date: 20220423
  Serious: Yes (Other)
  Sender: FDA-Public Use
  Company Number: IT-BRUNO-20220046

PATIENT
  Age: 71 Year
  Sex: Female

DRUGS (2)
  1. OXYCODONE [Suspect]
     Active Substance: OXYCODONE
     Indication: Pain
     Dosage: 30 MILLIGRAM, ONCE A DAY (15 MG, BID)
     Route: 065
     Dates: start: 2020
  2. NALDEMEDINE TOSYLATE [Suspect]
     Active Substance: NALDEMEDINE TOSYLATE
     Indication: Constipation
     Dosage: 200 MICROGRAM, ONCE A DAY
     Route: 065
     Dates: start: 2020

REACTIONS (4)
  - Condition aggravated [Recovered/Resolved]
  - Constipation [Recovered/Resolved]
  - Therapy non-responder [Unknown]
  - Abdominal pain upper [Unknown]

NARRATIVE: CASE EVENT DATE: 20200101
